FAERS Safety Report 5063721-6 (Version None)
Quarter: 2006Q3

REPORT INFORMATION
  Report Type: 
  Country: None (occurrence: None)
  Receive Date: 20060724
  Receipt Date: 20060718
  Transmission Date: 20061208
  Serious: Yes (Other)
  Sender: FDA-Public Use
  Company Number: 008079

PATIENT
  Sex: Female

DRUGS (5)
  1. MEDROXYPROGESTERONE ACETATE [Suspect]
     Dosage: ORAL
     Route: 048
     Dates: start: 20000901, end: 20020501
  2. PREMARIN [Suspect]
     Dosage: ORAL
     Route: 048
     Dates: start: 20000901, end: 20020501
  3. PREMPHASE (PREMARIN;CYCRIN 14/14) [Suspect]
     Dosage: ORAL
     Route: 048
     Dates: start: 20000901, end: 20020501
  4. PREMPRO [Suspect]
     Dosage: ORAL
     Route: 048
     Dates: start: 20000901, end: 20020501
  5. ESTRATEST [Suspect]
     Dosage: ORAL
     Route: 048
     Dates: start: 20000901, end: 20020501

REACTIONS (1)
  - BREAST CANCER FEMALE [None]
